FAERS Safety Report 8032519-9 (Version None)
Quarter: 2011Q4

REPORT INFORMATION
  Report Type: 
  Country: None (occurrence: None)
  Receive Date: 20111202
  Receipt Date: 20110818
  Transmission Date: 20120403
  Serious: Yes (Disabling)
  Sender: FDA-Public Use
  Company Number: PHHY2011US69187

PATIENT
  Age: 47 Year
  Sex: Female
  Weight: 120 kg

DRUGS (2)
  1. VENLAFAXINE [Concomitant]
  2. FANAPT [Suspect]
     Indication: SCHIZOAFFECTIVE DISORDER
     Dosage: 1 MG, BID UPTO 12 MG BID  ; 12 MG, BID
     Dates: start: 20110525, end: 20110726

REACTIONS (2)
  - URINARY INCONTINENCE [None]
  - DRUG INEFFECTIVE [None]
